FAERS Safety Report 24953495 (Version 1)
Quarter: 2025Q1

REPORT INFORMATION
  Report Type: Report from Study
  Country: CA (occurrence: CA)
  Receive Date: 20250211
  Receipt Date: 20250211
  Transmission Date: 20250409
  Serious: Yes (Other)
  Sender: TAKEDA
  Company Number: CA-TAKEDA-2025TUS013402

PATIENT
  Sex: Male

DRUGS (22)
  1. VEDOLIZUMAB [Suspect]
     Active Substance: VEDOLIZUMAB
     Indication: Colitis ulcerative
  2. VEDOLIZUMAB [Suspect]
     Active Substance: VEDOLIZUMAB
  3. VEDOLIZUMAB [Suspect]
     Active Substance: VEDOLIZUMAB
     Indication: Colitis ulcerative
     Dosage: 108 MILLIGRAM, Q2WEEKS
     Dates: start: 20240918
  4. FERROUS SULFATE [Concomitant]
     Active Substance: FERROUS SULFATE
  5. RAMIPRIL [Concomitant]
     Active Substance: RAMIPRIL
  6. PANTOPRAZOLE [Concomitant]
     Active Substance: PANTOPRAZOLE
  7. MYRBETRIQ [Concomitant]
     Active Substance: MIRABEGRON
  8. VITAMIN B12 [Concomitant]
     Active Substance: CYANOCOBALAMIN
  9. FUROSEMIDE [Concomitant]
     Active Substance: FUROSEMIDE
  10. ATORVASTATIN [Concomitant]
     Active Substance: ATORVASTATIN
  11. BETAHISTINE [Concomitant]
     Active Substance: BETAHISTINE
  12. ASPIRIN [Concomitant]
     Active Substance: ASPIRIN
  13. SPIRONOLACTONE [Concomitant]
     Active Substance: SPIRONOLACTONE
  14. DUTASTERIDE [Concomitant]
     Active Substance: DUTASTERIDE
  15. VITAMIN D [Concomitant]
     Active Substance: VITAMIN D NOS
  16. MAGNESIUM [Concomitant]
     Active Substance: MAGNESIUM
  17. VITAMIN C [Concomitant]
     Active Substance: ASCORBIC ACID
  18. FESOTERODINE [Concomitant]
     Active Substance: FESOTERODINE
  19. HYDROMORPHONE [Concomitant]
     Active Substance: HYDROMORPHONE
  20. CALTRATE WITH VITAMIN D [Concomitant]
     Active Substance: CALCIUM CARBONATE\CHOLECALCIFEROL
  21. VITAMIN D3 [Concomitant]
     Active Substance: CHOLECALCIFEROL
  22. HYDROXYCHLOROQUINE [Concomitant]
     Active Substance: HYDROXYCHLOROQUINE

REACTIONS (1)
  - Bone cancer [Unknown]
